FAERS Safety Report 6399685-2 (Version None)
Quarter: 2009Q4

REPORT INFORMATION
  Report Type: 
  Country: None (occurrence: None)
  Receive Date: 20091014
  Receipt Date: 20091003
  Transmission Date: 20100525
  Serious: Yes (Death)
  Sender: FDA-Public Use
  Company Number: PH-BAXTER-2009BH015128

PATIENT
  Age: 89 Year
  Sex: Male

DRUGS (1)
  1. DIANEAL [Suspect]
     Indication: PERITONEAL DIALYSIS
     Route: 033
     Dates: start: 20091002

REACTIONS (2)
  - BRADYCARDIA [None]
  - HYPOTENSION [None]
